FAERS Safety Report 20984346 (Version 2)
Quarter: 2024Q2

REPORT INFORMATION
  Report Type: Spontaneous
  Country: US (occurrence: None)
  Receive Date: 20220621
  Receipt Date: 20240609
  Transmission Date: 20240715
  Serious: No
  Sender: FDA-Public Use
  Company Number: US-ROCHE-3056351

PATIENT
  Age: 70 Year
  Sex: Female

DRUGS (2)
  1. TECENTRIQ [Suspect]
     Active Substance: ATEZOLIZUMAB
     Indication: Small cell lung cancer
     Route: 041
     Dates: start: 20220112
  2. REGLAN [Concomitant]
     Active Substance: METOCLOPRAMIDE HYDROCHLORIDE

REACTIONS (4)
  - Myalgia [Unknown]
  - Fatigue [Unknown]
  - Diarrhoea [Recovered/Resolved]
  - Muscle spasms [Unknown]
